FAERS Safety Report 7162154-6 (Version None)
Quarter: 2010Q4

REPORT INFORMATION
  Report Type: 
  Country: None (occurrence: None)
  Receive Date: 20101215
  Receipt Date: 20090827
  Transmission Date: 20110411
  Serious: Yes (Other)
  Sender: FDA-Public Use
  Company Number: FR-PFIZER INC-2009202941

PATIENT
  Age: 76 Year

DRUGS (1)
  1. LYRICA [Suspect]
     Dosage: 150 MG, 2X/DAY

REACTIONS (3)
  - DEHYDRATION [None]
  - HYPERHIDROSIS [None]
  - WITHDRAWAL SYNDROME [None]
